FAERS Safety Report 8894091 (Version 2)
Quarter: 2013Q1

REPORT INFORMATION
  Report Type: Spontaneous
  Country: US (occurrence: US)
  Receive Date: 20121108
  Receipt Date: 20130117
  Transmission Date: 20140127
  Serious: Yes (Death, Congenital Anomaly, Other)
  Sender: FDA-Public Use
  Company Number: US-PFIZER INC-2012276289

PATIENT
  Sex: Female

DRUGS (4)
  1. ZOLOFT [Suspect]
     Dosage: 200 MG, UNK
     Route: 064
  2. SERTRALINE HCL [Suspect]
     Dosage: UNK
     Route: 064
  3. ZYPREXA [Concomitant]
     Dosage: 2.5 MG, UNK
     Route: 064
  4. MULTIVITAMINS [Concomitant]
     Dosage: UNK
     Route: 064

REACTIONS (11)
  - Maternal exposure timing unspecified [Fatal]
  - Congenital anomaly [Fatal]
  - Premature baby [Fatal]
  - Low set ears [Unknown]
  - Ventricular septal defect [Unknown]
  - Chromosomal deletion [Unknown]
  - Interruption of aortic arch [Unknown]
  - Anterior chamber cleavage syndrome [Unknown]
  - Neonatal respiratory distress syndrome [Unknown]
  - Micrognathia [Unknown]
  - Atrial septal defect [Unknown]
